FAERS Safety Report 16310365 (Version 2)
Quarter: 2019Q2

REPORT INFORMATION
  Report Type: Spontaneous
  Country: FR (occurrence: FR)
  Receive Date: 20190514
  Receipt Date: 20190515
  Transmission Date: 20190711
  Serious: Yes (Other)
  Sender: FDA-Public Use
  Company Number: FR-ACCORD-127040

PATIENT
  Age: 44 Year
  Sex: Male
  Weight: 82 kg

DRUGS (5)
  1. METHOTREXATE. [Suspect]
     Active Substance: METHOTREXATE
     Indication: PSORIASIS
     Dosage: 15 MG, WEEKLY
     Route: 048
     Dates: start: 20130412, end: 2013
  2. HUMIRA [Concomitant]
     Active Substance: ADALIMUMAB
  3. FOLIC ACID. [Suspect]
     Active Substance: FOLIC ACID
     Indication: PSORIASIS
     Dosage: 5 MG, WEEKLY
     Route: 048
     Dates: start: 20130412, end: 2013
  4. OTEZLA [Concomitant]
     Active Substance: APREMILAST
  5. FONX [Concomitant]
     Indication: INTERTRIGO
     Dosage: UNK
     Dates: start: 20130719, end: 2013

REACTIONS (3)
  - Tinea pedis [Recovered/Resolved]
  - Hepatocellular injury [Recovered/Resolved]
  - Intertrigo [Recovered/Resolved]

NARRATIVE: CASE EVENT DATE: 2013
